FAERS Safety Report 8189558-7 (Version None)
Quarter: 2012Q1

REPORT INFORMATION
  Report Type: 
  Country: None (occurrence: None)
  Receive Date: 20120307
  Receipt Date: 20120224
  Transmission Date: 20120608
  Serious: Yes (Death, Other)
  Sender: FDA-Public Use
  Company Number: GB-CELGENEUS-167-21880-12022796

PATIENT
  Age: 65 Year
  Sex: Female
  Weight: 49.1 kg

DRUGS (2)
  1. SODIUM CLODRONATE [Concomitant]
     Indication: OSTEOPENIA
     Dosage: 1040 MILLIGRAM
     Route: 048
     Dates: start: 20030217, end: 20111102
  2. REVLIMID [Suspect]
     Indication: MULTIPLE MYELOMA
     Dosage: 10 MILLIGRAM
     Route: 048
     Dates: start: 20101006, end: 20110608

REACTIONS (2)
  - MYELODYSPLASTIC SYNDROME [None]
  - PANCREATIC CARCINOMA [None]
